FAERS Safety Report 8848614 (Version 1)
Quarter: 2012Q4

REPORT INFORMATION
  Report Type: 
  Country: BR (occurrence: BR)
  Receive Date: 20121019
  Receipt Date: 20121019
  Transmission Date: 20130627
  Serious: Yes (Hospitalization)
  Sender: FDA-Public Use
  Company Number: BR-BRISTOL-MYERS SQUIBB COMPANY-17034430

PATIENT
  Age: 61 Year
  Sex: Female

DRUGS (6)
  1. ONGLYZA TABS 5 MG [Suspect]
     Indication: DIABETES MELLITUS
     Route: 048
  2. GLIFAGE XR [Concomitant]
     Dosage: Twice at lunch and twice at dinner
  3. LOSARTAN [Concomitant]
  4. INDAPAMIDE [Concomitant]
  5. SIMVASTIN [Concomitant]
  6. ACETYLSALICYLIC ACID [Concomitant]

REACTIONS (1)
  - Osteomyelitis [Recovering/Resolving]
